FAERS Safety Report 8367178-9 (Version None)
Quarter: 2012Q1

REPORT INFORMATION
  Report Type: 
  Country: None (occurrence: None)
  Receive Date: 20120323
  Receipt Date: 20110728
  Transmission Date: 20120608
  Serious: Yes (Hospitalization)
  Sender: FDA-Public Use
  Company Number: 163-21880-11073406

PATIENT
  Age: 78 Year
  Sex: Male

DRUGS (11)
  1. DIOVAN [Concomitant]
  2. CYTOXIAN (CYCLOPHOSPHAMIDE) [Concomitant]
  3. DEXAMETHASONE (DEAMETHASONE) [Concomitant]
  4. COREG [Concomitant]
  5. REVLIMID [Suspect]
     Indication: MULTIPLE MYELOMA
     Dosage: 25 MG, X 21 DAYS, PO; 25 MG, 1 IN 1 D, PO; 15 MG, 1 IN 1 D, PO; 25 MG, 1 IN 1 D, PO
     Route: 048
     Dates: start: 20091101
  6. REVLIMID [Suspect]
     Indication: MULTIPLE MYELOMA
     Dosage: 25 MG, X 21 DAYS, PO; 25 MG, 1 IN 1 D, PO; 15 MG, 1 IN 1 D, PO; 25 MG, 1 IN 1 D, PO
     Route: 048
     Dates: start: 20080201
  7. REVLIMID [Suspect]
     Indication: MULTIPLE MYELOMA
     Dosage: 25 MG, X 21 DAYS, PO; 25 MG, 1 IN 1 D, PO; 15 MG, 1 IN 1 D, PO; 25 MG, 1 IN 1 D, PO
     Route: 048
     Dates: start: 20081101
  8. REVLIMID [Suspect]
     Indication: MULTIPLE MYELOMA
     Dosage: 25 MG, X 21 DAYS, PO; 25 MG, 1 IN 1 D, PO; 15 MG, 1 IN 1 D, PO; 25 MG, 1 IN 1 D, PO
     Route: 048
     Dates: start: 20091201
  9. COUMADIN [Concomitant]
  10. LUMIGAN [Concomitant]
  11. COMBIGAN (COMBIGAN) [Concomitant]

REACTIONS (1)
  - FEBRILE NEUTROPENIA [None]
